FAERS Safety Report 8601256-1 (Version None)
Quarter: 2012Q3

REPORT INFORMATION
  Report Type: 
  Country: None (occurrence: None)
  Receive Date: 20120806
  Receipt Date: 20120806
  Transmission Date: 20120928
  Serious: Yes (Other)
  Sender: FDA-Public Use
  Company Number: None

PATIENT
  Sex: Female
  Weight: 95.709 kg

DRUGS (2)
  1. LEVOTHYROXINE SODIUM [Suspect]
  2. LEVOTHYROXINE SODIUM [Suspect]
     Indication: HYPOTHYROIDISM
     Dosage: 150MCG 1 DAILY ORAL
     Route: 048

REACTIONS (6)
  - HOT FLUSH [None]
  - BLOOD THYROID STIMULATING HORMONE ABNORMAL [None]
  - ANXIETY [None]
  - ALOPECIA [None]
  - DECREASED APPETITE [None]
  - PRODUCT SUBSTITUTION ISSUE [None]
